FAERS Safety Report 16534981 (Version 1)
Quarter: 2019Q3

REPORT INFORMATION
  Report Type: Spontaneous
  Country: GB (occurrence: GB)
  Receive Date: 20190705
  Receipt Date: 20190705
  Transmission Date: 20191004
  Serious: Yes (Hospitalization, Other)
  Sender: FDA-Public Use
  Company Number: GB-NOVOPROD-670496

PATIENT
  Age: 66 Year
  Sex: Female

DRUGS (1)
  1. NOVOMIX 30 FLEXPEN [Suspect]
     Active Substance: INSULIN ASPART
     Indication: PRODUCT USED FOR UNKNOWN INDICATION
     Dosage: 46 UNITS AT BREAKFAST, 46 UNITS AT LUNCH AND 72 AT DINNER
     Route: 065

REACTIONS (3)
  - Hypoglycaemia [Not Recovered/Not Resolved]
  - Suicide attempt [Unknown]
  - Overdose [Unknown]
